FAERS Safety Report 14691587 (Version 1)
Quarter: 2018Q1

REPORT INFORMATION
  Report Type: Spontaneous
  Country: US (occurrence: US)
  Receive Date: 20180328
  Receipt Date: 20180328
  Transmission Date: 20180509
  Serious: Yes (Other)
  Sender: FDA-Public Use
  Company Number: US-BEH-2018089097

PATIENT
  Age: 53 Year
  Sex: Male

DRUGS (4)
  1. RIASTAP [Suspect]
     Active Substance: FIBRINOGEN HUMAN
     Dosage: 8 G, QD
     Route: 065
  2. RIASTAP [Suspect]
     Active Substance: FIBRINOGEN HUMAN
     Dosage: 6 G, QD
     Route: 065
  3. RIASTAP [Suspect]
     Active Substance: FIBRINOGEN HUMAN
     Indication: HYPOFIBRINOGENAEMIA
     Dosage: 2 G, QD
     Route: 065
  4. RIASTAP [Suspect]
     Active Substance: FIBRINOGEN HUMAN
     Indication: HAEMORRHAGE
     Dosage: 4 G, QD
     Route: 065

REACTIONS (1)
  - Drug ineffective for unapproved indication [Recovered/Resolved]
